FAERS Safety Report 10162223 (Version 1)
Quarter: 2014Q2

REPORT INFORMATION
  Report Type: Spontaneous
  Country: US (occurrence: None)
  Receive Date: 20140508
  Receipt Date: 20140508
  Transmission Date: 20141212
  Serious: Yes (Hospitalization, Other)
  Sender: FDA-Public Use
  Company Number: None

PATIENT
  Age: 7 Month
  Sex: Female
  Weight: 7.94 kg

DRUGS (1)
  1. HYLAND^S TEETHING TABLETS [Suspect]
     Indication: TEETHING
     Dosage: AS DIRECTED ON LABLE PRN/AS NEEDED ORAL
     Route: 048
     Dates: start: 20131020, end: 20131025

REACTIONS (1)
  - Convulsion [None]
